FAERS Safety Report 13948710 (Version 1)
Quarter: 2017Q3

REPORT INFORMATION
  Report Type: Spontaneous
  Country: US (occurrence: US)
  Receive Date: 20170908
  Receipt Date: 20170908
  Transmission Date: 20171128
  Serious: Yes (Hospitalization, Other)
  Sender: FDA-Public Use
  Company Number: PHHY2017US130282

PATIENT

DRUGS (3)
  1. TOBRAMYCIN. [Interacting]
     Active Substance: TOBRAMYCIN
     Indication: CYSTIC FIBROSIS
     Route: 065
  2. PIPERACILLIN AND TAZOBACTAM [Suspect]
     Active Substance: PIPERACILLIN SODIUM\TAZOBACTAM SODIUM
     Indication: CYSTIC FIBROSIS
     Route: 065
  3. VANCOMYCIN [Interacting]
     Active Substance: VANCOMYCIN
     Indication: CYSTIC FIBROSIS
     Route: 065

REACTIONS (2)
  - Acute kidney injury [Unknown]
  - Drug interaction [Unknown]
